FAERS Safety Report 5875167-9 (Version None)
Quarter: 2008Q3

REPORT INFORMATION
  Report Type: 
  Country: None (occurrence: None)
  Receive Date: 20080909
  Receipt Date: 20080829
  Transmission Date: 20090109
  Serious: Yes (Hospitalization)
  Sender: FDA-Public Use
  Company Number: DE-JNJFOC-20080803939

PATIENT
  Sex: Male
  Weight: 68 kg

DRUGS (7)
  1. INFLIXIMAB [Suspect]
     Route: 042
  2. INFLIXIMAB [Suspect]
     Route: 042
  3. INFLIXIMAB [Suspect]
     Indication: CROHN'S DISEASE
     Route: 042
  4. AZATHIOPRINE [Concomitant]
     Indication: CROHN'S DISEASE
  5. IDEOS [Concomitant]
  6. CORTISONE [Concomitant]
  7. CORTISONE [Concomitant]
     Indication: CROHN'S DISEASE

REACTIONS (2)
  - EPIDIDYMITIS [None]
  - INTESTINAL RESECTION [None]
